FAERS Safety Report 21317208 (Version 5)
Quarter: 2025Q1

REPORT INFORMATION
  Report Type: Spontaneous
  Country: US (occurrence: US)
  Receive Date: 20220911
  Receipt Date: 20250224
  Transmission Date: 20250409
  Serious: No
  Sender: SANOFI AVENTIS
  Company Number: US-SANOFI-01239537

PATIENT
  Age: 79 Year
  Sex: Male

DRUGS (11)
  1. DUPIXENT [Suspect]
     Active Substance: DUPILUMAB
     Indication: Eczema
     Dosage: 300 MG, QOW
     Route: 058
     Dates: start: 20220328, end: 20241225
  2. DUPIXENT [Suspect]
     Active Substance: DUPILUMAB
     Indication: Dermatitis atopic
  3. TRIAMCINOLONE [Concomitant]
     Active Substance: TRIAMCINOLONE
  4. NORVASC [Concomitant]
     Active Substance: AMLODIPINE BESYLATE
  5. FOSAMAX [Concomitant]
     Active Substance: ALENDRONATE SODIUM
  6. LOSARTAN [Concomitant]
     Active Substance: LOSARTAN
  7. SIMVASTATIN [Concomitant]
     Active Substance: SIMVASTATIN
  8. CARMOL HC [HYDROCORTISONE ACETATE] [Concomitant]
  9. MUPIROCIN [Concomitant]
     Active Substance: MUPIROCIN
  10. ALBUTEROL [Concomitant]
     Active Substance: ALBUTEROL
  11. ELIQUIS [Concomitant]
     Active Substance: APIXABAN

REACTIONS (1)
  - Injection site scar [Unknown]

NARRATIVE: CASE EVENT DATE: 20220816
